FAERS Safety Report 5925848-3 (Version None)
Quarter: 2008Q4

REPORT INFORMATION
  Report Type: 
  Country: None (occurrence: None)
  Receive Date: 20081021
  Receipt Date: 20081009
  Transmission Date: 20090506
  Serious: Yes (Hospitalization)
  Sender: FDA-Public Use
  Company Number: IT-PFIZER INC-2008027692

PATIENT
  Sex: Female
  Weight: 70 kg

DRUGS (10)
  1. SU-011,248 [Suspect]
     Indication: BREAST CANCER
     Dosage: DAILY DOSE:37.5MG
     Route: 048
     Dates: start: 20080227, end: 20080303
  2. SU-011,248 [Suspect]
     Dosage: DAILY DOSE:25MG
     Route: 048
     Dates: start: 20080319, end: 20080324
  3. SU-011,248 [Suspect]
  4. DOCETAXEL [Suspect]
     Indication: BREAST CANCER
     Route: 042
     Dates: start: 20080226
  5. DOCETAXEL [Suspect]
     Route: 042
     Dates: start: 20080318
  6. TRASTUZUMAB [Suspect]
     Indication: BREAST CANCER
     Route: 042
     Dates: start: 20080226
  7. TRASTUZUMAB [Suspect]
     Route: 042
     Dates: start: 20080318
  8. MYCOSTATIN [Concomitant]
     Route: 048
     Dates: start: 20080317
  9. LANSOX [Concomitant]
     Route: 048
     Dates: start: 20080317
  10. PLAK OUT [Concomitant]
     Route: 048
     Dates: start: 20080317

REACTIONS (3)
  - DIARRHOEA [None]
  - NEUTROPENIA [None]
  - PRESYNCOPE [None]
